FAERS Safety Report 14776661 (Version 2)
Quarter: 2018Q2

REPORT INFORMATION
  Report Type: Report from Study
  Country: None (occurrence: ES)
  Receive Date: 20180419
  Receipt Date: 20180423
  Transmission Date: 20180711
  Serious: Yes (Death, Hospitalization)
  Sender: FDA-Public Use
  Company Number: ES-ABBVIE-18K-144-2293530-00

PATIENT
  Age: 71 Year
  Sex: Male

DRUGS (1)
  1. DUODOPA [Suspect]
     Active Substance: CARBIDOPA\LEVODOPA
     Indication: PARKINSON^S DISEASE
     Route: 050
     Dates: start: 20160927

REACTIONS (13)
  - Asthenia [Unknown]
  - Constipation [Unknown]
  - General physical health deterioration [Fatal]
  - Gastroenteritis [Unknown]
  - Vomiting [Recovered/Resolved]
  - Stoma site erythema [Unknown]
  - Stoma site infection [Unknown]
  - Abdominal pain upper [Unknown]
  - Rectal haemorrhage [Not Recovered/Not Resolved]
  - Hypophagia [Unknown]
  - Mastication disorder [Unknown]
  - Cough [Unknown]
  - Dysphagia [Recovering/Resolving]

NARRATIVE: CASE EVENT DATE: 201803
